FAERS Safety Report 24650600 (Version 1)
Quarter: 2024Q4

REPORT INFORMATION
  Report Type: Spontaneous
  Country: CN (occurrence: CN)
  Receive Date: 20241122
  Receipt Date: 20241122
  Transmission Date: 20250115
  Serious: Yes (Other)
  Sender: ASTELLAS
  Company Number: CN-ASTELLAS-2024-AER-020125

PATIENT
  Age: 32 Year
  Sex: Male
  Weight: 51.0 kg

DRUGS (5)
  1. ISAVUCONAZONIUM SULFATE [Suspect]
     Active Substance: ISAVUCONAZONIUM SULFATE
     Indication: Pneumonia fungal
     Dosage: QD
     Route: 050
     Dates: start: 20241013, end: 20241014
  2. METHYLPREDNISOLONE SODIUM SUCCINATE [Concomitant]
     Active Substance: METHYLPREDNISOLONE SODIUM SUCCINATE
     Indication: Immunomodulatory therapy
     Route: 065
     Dates: start: 20241012, end: 20241015
  3. METHYLPREDNISOLONE SODIUM SUCCINATE [Concomitant]
     Active Substance: METHYLPREDNISOLONE SODIUM SUCCINATE
     Route: 065
     Dates: start: 20241012, end: 20241015
  4. TACROLIMUS [Concomitant]
     Active Substance: TACROLIMUS
     Indication: Immunomodulatory therapy
     Dosage: DOSE REDUCED TO 0.7 MG INTRAVENOUS PUMP ONCE EVERY NIGHT
     Route: 065
     Dates: start: 20241012, end: 20241015
  5. AMPHOTERICIN B [Concomitant]
     Active Substance: AMPHOTERICIN B
     Indication: Product used for unknown indication
     Route: 065

REACTIONS (5)
  - Muscular weakness [Recovered/Resolved]
  - Eyelid ptosis [Recovered/Resolved]
  - Lip disorder [Recovered/Resolved]
  - Tremor [Recovered/Resolved]
  - Off label use [Unknown]

NARRATIVE: CASE EVENT DATE: 20241013
